FAERS Safety Report 9167458 (Version 1)
Quarter: 2013Q1

REPORT INFORMATION
  Report Type: Spontaneous
  Country: US (occurrence: None)
  Receive Date: 20130304
  Receipt Date: 20130304
  Transmission Date: 20140127
  Serious: Yes (Other)
  Sender: FDA-Public Use
  Company Number: 2013P1002667

PATIENT
  Sex: 0

DRUGS (3)
  1. PROPRANOLOL [Suspect]
     Indication: DEFORMITY
     Dosage: 1 MG/KG/DAY;DIVIDED TID;
  2. UNSPECIFIED [Concomitant]
  3. CORTICOSTEROID [Concomitant]

REACTIONS (2)
  - Peripheral arterial occlusive disease [None]
  - Sleep disorder [None]
